FAERS Safety Report 5345110-X (Version None)
Quarter: 2007Q2

REPORT INFORMATION
  Report Type: 
  Country: None (occurrence: None)
  Receive Date: 20070601
  Receipt Date: 20070516
  Transmission Date: 20071010
  Serious: Yes (Other)
  Sender: FDA-Public Use
  Company Number: DSA_61570_2007

PATIENT
  Age: 33 Year
  Sex: Female

DRUGS (3)
  1. DIHYDROERGOTAMINE MESYLATE [Suspect]
     Indication: MIGRAINE
     Dosage: (3 MG QD ORAL)
     Route: 048
  2. VOLTAREN [Suspect]
     Indication: MIGRAINE
     Dosage: (ORAL)
     Route: 048
  3. CLEAMINE (CLEAMINE) [Suspect]
     Dosage: (ORAL)
     Route: 048

REACTIONS (1)
  - HEADACHE [None]
